FAERS Safety Report 4854558-9 (Version None)
Quarter: 2005Q4

REPORT INFORMATION
  Report Type: 
  Country: None (occurrence: None)
  Receive Date: 20051215
  Receipt Date: 20010720
  Transmission Date: 20060501
  Serious: Yes (Hospitalization)
  Sender: FDA-Public Use
  Company Number: FR-ROCHE-264180

PATIENT
  Age: 44 Year
  Sex: Male
  Weight: 55 kg

DRUGS (9)
  1. PEG-INTERFERON ALFA 2A (RO 25-8310) [Suspect]
     Route: 058
     Dates: start: 20001113, end: 20010828
  2. RIBAVIRIN [Suspect]
     Dosage: WITH FOOD.
     Route: 048
     Dates: start: 20001113, end: 20010828
  3. COTRIM [Concomitant]
     Dates: start: 19970130
  4. D4T [Concomitant]
     Dates: start: 20000327, end: 20010825
  5. NVP [Concomitant]
     Dates: start: 20000327, end: 20010825
  6. VIDEX [Concomitant]
     Dates: start: 19970115, end: 20010825
  7. INDINAVIR [Concomitant]
     Dates: start: 19970115
  8. HYDROCORTISONE [Concomitant]
     Dates: start: 20010710
  9. BROMAZEPAM [Concomitant]
     Dates: start: 20010620

REACTIONS (19)
  - ASTHENIA [None]
  - BLOOD AMYLASE INCREASED [None]
  - CHOLANGITIS [None]
  - CYTOLYTIC HEPATITIS [None]
  - DEPRESSION [None]
  - DIZZINESS [None]
  - DUODENITIS [None]
  - DYSPNOEA [None]
  - FATIGUE [None]
  - GASTRITIS [None]
  - HEPATITIS CHOLESTATIC [None]
  - LIPASE INCREASED [None]
  - LOSS OF CONSCIOUSNESS [None]
  - PANIC ATTACK [None]
  - SECONDARY ADRENOCORTICAL INSUFFICIENCY [None]
  - SENSE OF OPPRESSION [None]
  - SYNCOPE [None]
  - THYROXINE FREE DECREASED [None]
  - VISION BLURRED [None]
